FAERS Safety Report 16318068 (Version 5)
Quarter: 2021Q3

REPORT INFORMATION
  Report Type: Report from Study
  Country: ZA (occurrence: ZA)
  Receive Date: 20190516
  Receipt Date: 20210923
  Transmission Date: 20211014
  Serious: Yes (Hospitalization, Congenital Anomaly)
  Sender: FDA-Public Use
  Company Number: ZA-VIIV HEALTHCARE LIMITED-ZA2018GSK148130

PATIENT
  Age: 1 Day
  Sex: Female
  Weight: 2.92 kg

DRUGS (1)
  1. DOLUTEGRAVIR [Suspect]
     Active Substance: DOLUTEGRAVIR
     Indication: HIV INFECTION
     Dosage: UNK
     Route: 064
     Dates: start: 20180601

REACTIONS (3)
  - Seizure [Recovered/Resolved]
  - Sepsis [Recovered/Resolved]
  - Laryngomalacia [Recovered/Resolved]

NARRATIVE: CASE EVENT DATE: 20180812
